FAERS Safety Report 11794565 (Version 1)
Quarter: 2015Q4

REPORT INFORMATION
  Report Type: Spontaneous
  Country: US (occurrence: None)
  Receive Date: 20151202
  Receipt Date: 20151202
  Transmission Date: 20160305
  Serious: Yes (Other)
  Sender: FDA-Public Use
  Company Number: None

PATIENT
  Age: 26 Year
  Sex: Female
  Weight: 66.23 kg

DRUGS (2)
  1. MIFEPREX [Suspect]
     Active Substance: MIFEPRISTONE
     Indication: ABORTION INDUCED
     Dosage: 3 PILLS SINGLE DOSE
     Route: 048
     Dates: start: 20151121, end: 20151121
  2. RH (D) IMMUNE GLOBULIN [Concomitant]

REACTIONS (1)
  - Induced abortion failed [None]

NARRATIVE: CASE EVENT DATE: 20151130
